FAERS Safety Report 14643164 (Version 2)
Quarter: 2018Q1

REPORT INFORMATION
  Report Type: Spontaneous
  Country: IT (occurrence: IT)
  Receive Date: 20180315
  Receipt Date: 20180327
  Transmission Date: 20180509
  Serious: Yes (Life-Threatening)
  Sender: FDA-Public Use
  Company Number: IT-ELI_LILLY_AND_COMPANY-IT201803005765

PATIENT
  Age: 74 Year
  Sex: Female

DRUGS (3)
  1. FLUOROURACIL. [Concomitant]
     Active Substance: FLUOROURACIL
     Indication: HEAD AND NECK CANCER METASTATIC
     Dosage: 3816 MG, UNKNOWN
  2. CISPLATIN. [Concomitant]
     Active Substance: CISPLATIN
     Indication: HEAD AND NECK CANCER METASTATIC
     Dosage: 96 MG, UNKNOWN
  3. ERBITUX [Suspect]
     Active Substance: CETUXIMAB
     Indication: HEAD AND NECK CANCER METASTATIC
     Dosage: 636 MG, UNKNOWN
     Route: 042
     Dates: start: 20180206, end: 20180206

REACTIONS (3)
  - Oxygen saturation decreased [Recovered/Resolved]
  - Dyspnoea [Recovered/Resolved]
  - Throat tightness [Recovered/Resolved]

NARRATIVE: CASE EVENT DATE: 20180206
